FAERS Safety Report 16770754 (Version 1)
Quarter: 2019Q3

REPORT INFORMATION
  Report Type: Report from Study
  Country: DE (occurrence: DE)
  Receive Date: 20190904
  Receipt Date: 20190904
  Transmission Date: 20191005
  Serious: Yes (Death, Other)
  Sender: FDA-Public Use
  Company Number: DE-BRISTOL-MYERS SQUIBB COMPANY-BMS-2019-085898

PATIENT
  Age: 79 Year
  Sex: Female

DRUGS (2)
  1. NIVOLUMAB [Suspect]
     Active Substance: NIVOLUMAB
     Indication: MALIGNANT MELANOMA
     Dosage: 87.0 MILLIGRAM, Q3WK
     Route: 042
     Dates: start: 20190401, end: 20190507
  2. IPILIMUMAB [Suspect]
     Active Substance: IPILIMUMAB
     Indication: MALIGNANT MELANOMA
     Dosage: 261.0 MILLIGRAM, Q3WK
     Route: 042
     Dates: start: 20190401, end: 20190507

REACTIONS (1)
  - Death [Fatal]

NARRATIVE: CASE EVENT DATE: 20190727
